FAERS Safety Report 22013263 (Version 1)
Quarter: 2023Q1

REPORT INFORMATION
  Report Type: Spontaneous
  Country: None (occurrence: US)
  Receive Date: 20230220
  Receipt Date: 20230220
  Transmission Date: 20230417
  Serious: Yes (Other)
  Sender: FDA-Public Use
  Company Number: US-Pine Pharmaceuticals, LLC-2138203

PATIENT
  Age: 75 Year
  Sex: Male

DRUGS (1)
  1. PHENYLEPHRINE HYDROCHLORIDE\TROPICAMIDE [Suspect]
     Active Substance: PHENYLEPHRINE HYDROCHLORIDE\TROPICAMIDE
     Indication: Pupil dilation procedure
     Route: 047
     Dates: start: 20230117, end: 20230117

REACTIONS (1)
  - Conjunctivitis allergic [Unknown]

NARRATIVE: CASE EVENT DATE: 20230119
